FAERS Safety Report 23932728 (Version 1)
Quarter: 2024Q2

REPORT INFORMATION
  Report Type: Spontaneous
  Country: US (occurrence: None)
  Receive Date: 20240601
  Receipt Date: 20240601
  Transmission Date: 20240716
  Serious: No
  Sender: FDA-Public Use
  Company Number: None

PATIENT
  Age: 73 Year
  Sex: Female
  Weight: 100.8 kg

DRUGS (2)
  1. PREDNISOLONE ACETATE [Suspect]
     Active Substance: PREDNISOLONE ACETATE
     Indication: Cataract operation
     Dosage: OTHER QUANTITY : 1 DROP(S)?OTHER FREQUENCY : 6X A DAY, THEN 4X?
     Route: 047
     Dates: start: 20240419, end: 20240526
  2. foot meds for naill fungus [Concomitant]

REACTIONS (7)
  - Depression [None]
  - Miosis [None]
  - Visual impairment [None]
  - Eye contusion [None]
  - Skin discolouration [None]
  - Eyelid function disorder [None]
  - Myalgia [None]

NARRATIVE: CASE EVENT DATE: 20240502
